FAERS Safety Report 10995408 (Version 9)
Quarter: 2016Q2

REPORT INFORMATION
  Report Type: Report from Study
  Country: BR (occurrence: BR)
  Receive Date: 20150407
  Receipt Date: 20160617
  Transmission Date: 20160815
  Serious: Yes (Hospitalization, Other)
  Sender: FDA-Public Use
  Company Number: PHHY2015BR040863

PATIENT
  Sex: Female
  Weight: 60 kg

DRUGS (3)
  1. GILENYA [Suspect]
     Active Substance: FINGOLIMOD HYDROCHLORIDE
     Indication: MULTIPLE SCLEROSIS
     Dosage: 0.5 MG, QD (AFTER LUNCH)
     Route: 048
  2. OLEPTAL [Suspect]
     Active Substance: OXCARBAZEPINE
     Indication: CEREBRAL DISORDER
     Dosage: 120 MG, UNK
     Route: 065
  3. ATENOLOL. [Concomitant]
     Active Substance: ATENOLOL
     Indication: HYPERTENSION
     Dosage: 1 OT, QD
     Route: 048

REACTIONS (10)
  - Stroke in evolution [Not Recovered/Not Resolved]
  - Tongue disorder [Recovered/Resolved]
  - Memory impairment [Not Recovered/Not Resolved]
  - Multiple sclerosis relapse [Recovered/Resolved]
  - Dizziness [Not Recovered/Not Resolved]
  - Feeling hot [Unknown]
  - Type 2 diabetes mellitus [Recovering/Resolving]
  - Multiple sclerosis relapse [Recovering/Resolving]
  - Nervousness [Recovered/Resolved]
  - Abasia [Unknown]
